FAERS Safety Report 8050725-4 (Version None)
Quarter: 2012Q1

REPORT INFORMATION
  Report Type: 
  Country: None (occurrence: None)
  Receive Date: 20120117
  Receipt Date: 20120117
  Transmission Date: 20120608
  Serious: Yes (Other)
  Sender: FDA-Public Use
  Company Number: None

PATIENT
  Age: 65 Year
  Sex: Male
  Weight: 90.718 kg

DRUGS (1)
  1. CHORIONIC GONADOTROPIN [Suspect]
     Dosage: 1 ML.
     Route: 048

REACTIONS (1)
  - NO ADVERSE EVENT [None]
